FAERS Safety Report 7836904-7 (Version None)
Quarter: 2011Q4

REPORT INFORMATION
  Report Type: 
  Country: None (occurrence: None)
  Receive Date: 20111024
  Receipt Date: 20101215
  Transmission Date: 20120403
  Serious: No
  Sender: FDA-Public Use
  Company Number: US-ABBOTT-10P-163-0692271-00

PATIENT
  Sex: Female
  Weight: 70.37 kg

DRUGS (2)
  1. SIMVASTATIN [Concomitant]
     Indication: BLOOD CHOLESTEROL INCREASED
  2. LUPRON DEPOT [Suspect]
     Indication: MENORRHAGIA
     Dates: start: 20100901, end: 20100901

REACTIONS (5)
  - TREMOR [None]
  - HYPERHIDROSIS [None]
  - ANXIETY [None]
  - CONFUSIONAL STATE [None]
  - URINARY INCONTINENCE [None]
